FAERS Safety Report 14470508 (Version 1)
Quarter: 2018Q1

REPORT INFORMATION
  Report Type: Spontaneous
  Country: US (occurrence: US)
  Receive Date: 20180125
  Receipt Date: 20180125
  Transmission Date: 20180509
  Serious: Yes (Other)
  Sender: FDA-Public Use
  Company Number: None

PATIENT
  Age: 47 Year
  Sex: Female
  Weight: 68.04 kg

DRUGS (8)
  1. IRON [Concomitant]
     Active Substance: IRON
  2. MODAFINIL. [Concomitant]
     Active Substance: MODAFINIL
  3. VITAMIN B [Concomitant]
     Active Substance: VITAMIN B
  4. MRI-GADOLINIUM [Suspect]
     Active Substance: GADOLINIUM
  5. CALCIUM [Concomitant]
     Active Substance: CALCIUM
  6. VITAMIN C [Concomitant]
     Active Substance: ASCORBIC ACID
  7. VITAMIN D [Concomitant]
     Active Substance: CHOLECALCIFEROL
  8. S-ADENOSYLMETHIONINE SULFATE P-TOLUENESULFONATE [Concomitant]
     Active Substance: ADEMETIONINE SULFATE TOSILATE

REACTIONS (4)
  - Nausea [None]
  - Dizziness [None]
  - Headache [None]
  - Feeling hot [None]

NARRATIVE: CASE EVENT DATE: 20150105
